FAERS Safety Report 7217345-2 (Version None)
Quarter: 2011Q1

REPORT INFORMATION
  Report Type: 
  Country: None (occurrence: None)
  Receive Date: 20110110
  Receipt Date: 20110104
  Transmission Date: 20110831
  Serious: Yes (Other)
  Sender: FDA-Public Use
  Company Number: DE-SANOFI-AVENTIS-2010SA004331

PATIENT
  Sex: Female

DRUGS (3)
  1. ARAVA [Suspect]
     Route: 050
     Dates: end: 20091101
  2. HUMIRA [Suspect]
     Route: 050
     Dates: end: 20091101
  3. MONOCLONAL ANTIBODY 17-1A [Suspect]
     Route: 042
     Dates: start: 20091101

REACTIONS (3)
  - UMBILICAL CORD ABNORMALITY [None]
  - DRUG EXPOSURE DURING PREGNANCY [None]
  - MISSED LABOUR [None]
